FAERS Safety Report 6291997-6 (Version None)
Quarter: 2009Q3

REPORT INFORMATION
  Report Type: 
  Country: None (occurrence: None)
  Receive Date: 20090730
  Receipt Date: 20090722
  Transmission Date: 20100115
  Serious: Yes (Death, Hospitalization)
  Sender: FDA-Public Use
  Company Number: US-BAXTER-2009BH011818

PATIENT
  Age: 69 Year
  Sex: Female

DRUGS (2)
  1. DIANEAL [Suspect]
     Indication: PERITONEAL DIALYSIS
     Route: 033
     Dates: start: 20081201, end: 20090705
  2. DIANEAL [Suspect]
     Route: 033
     Dates: end: 20081201

REACTIONS (3)
  - CEREBROVASCULAR ACCIDENT [None]
  - DECUBITUS ULCER [None]
  - THERAPY CESSATION [None]
